FAERS Safety Report 10383824 (Version 1)
Quarter: 2014Q1

REPORT INFORMATION
  Report Type: Spontaneous
  Country: US (occurrence: None)
  Receive Date: 20140306
  Receipt Date: 20140306
  Transmission Date: 20141002
  Serious: Yes (Disabling, Other)
  Sender: FDA-Public Use
  Company Number: 163-21880-13061012

PATIENT
  Age: 65 Year
  Sex: Female

DRUGS (15)
  1. REVLIMID (LENALIDOMIDE) (2.5 MILLIGRAM, CAPSULES) [Suspect]
     Indication: PLASMA CELL MYELOMA
     Route: 048
     Dates: start: 20120213
  2. PROTONIX (TABLETS) [Concomitant]
  3. FLAGYL (METRONIDAZOLE) (TABLETS) [Concomitant]
  4. ACYCLOVIR (ACICLOVIR) (TABLETS) [Concomitant]
  5. TUMS (CALCIUM CARBONATE) (TABLETS) [Concomitant]
  6. ASPIRIN (ACETYLSALICYLIC ACID) (TABLETS) [Concomitant]
  7. METOPROLOL TARTRATE [Concomitant]
  8. PROCHLORPERAZINE [Concomitant]
  9. VITAMIN D3 (COLECALCIFEROL) [Concomitant]
  10. DIALYVITE [Concomitant]
  11. PROCRIT (ERYTHROPOIETIN) [Concomitant]
  12. SODIUM BICARBONATE [Concomitant]
  13. ZINC [Concomitant]
  14. PANTOPRAZOLE [Concomitant]
  15. PREDNISOLONE [Concomitant]

REACTIONS (4)
  - Renal failure [None]
  - Treatment noncompliance [None]
  - Neuropathy peripheral [None]
  - Diarrhoea [None]
